FAERS Safety Report 11410902 (Version 1)
Quarter: 2015Q3

REPORT INFORMATION
  Report Type: Other
  Country: FR (occurrence: FR)
  Receive Date: 20150824
  Receipt Date: 20150824
  Transmission Date: 20151125
  Serious: Yes (Death, Hospitalization)
  Sender: FDA-Public Use
  Company Number: FR-MYLANLABS-2015M1027216

PATIENT

DRUGS (6)
  1. DEXAMETHASONE MYLAN [Suspect]
     Active Substance: DEXAMETHASONE
     Indication: CHEMOTHERAPY
     Dosage: 40 MG, CYCLE
     Route: 042
     Dates: start: 20150311, end: 20150320
  2. CARBOPLATINE MYLAN 10 MG/ML SOLUTION POUR PERFUSION [Suspect]
     Active Substance: CARBOPLATIN
     Indication: CHEMOTHERAPY
     Dosage: 800 MG, CYCLE
     Route: 042
     Dates: start: 20150319, end: 20150320
  3. CYTARABIN FRESENIUS KABI [Suspect]
     Active Substance: CYTARABINE
     Dosage: UNK
     Dates: start: 20150409
  4. CARBOPLATINE MYLAN 10 MG/ML SOLUTION POUR PERFUSION [Suspect]
     Active Substance: CARBOPLATIN
     Dosage: UNK
     Dates: start: 20150409
  5. CYTARABIN FRESENIUS KABI [Suspect]
     Active Substance: CYTARABINE
     Indication: CHEMOTHERAPY
     Dosage: 2000 MG/M2, UNK
     Route: 042
     Dates: start: 20150319, end: 20150320
  6. DEXAMETHASONE MYLAN [Suspect]
     Active Substance: DEXAMETHASONE
     Dosage: UNK, CYCLE
     Dates: start: 20150409

REACTIONS (1)
  - Aplasia [Recovered/Resolved]

NARRATIVE: CASE EVENT DATE: 20150326
